FAERS Safety Report 4551284-0 (Version None)
Quarter: 2005Q1

REPORT INFORMATION
  Report Type: 
  Country: None (occurrence: None)
  Receive Date: 20050111
  Receipt Date: 20050111
  Transmission Date: 20050727
  Serious: Yes (Hospitalization)
  Sender: FDA-Public Use
  Company Number: None

PATIENT
  Age: 69 Year
  Sex: Male

DRUGS (7)
  1. GLEEVEC [Suspect]
     Indication: NEOPLASM MALIGNANT
     Dosage: 200 MG BID X 4 / WEEK ORAL
     Route: 048
     Dates: start: 20040706, end: 20041129
  2. TAXOL [Suspect]
     Dosage: 80 MG/M2 Q WK X 3 Q 4 WK INTRAVENOUS
     Route: 042
     Dates: start: 20040708, end: 20041119
  3. LIPITOR [Concomitant]
  4. XANAX [Concomitant]
  5. RESTORIL [Concomitant]
  6. PERCOCET [Concomitant]
  7. TOPROL-XL [Concomitant]

REACTIONS (14)
  - ANOREXIA [None]
  - ASCITES [None]
  - BACK PAIN [None]
  - CONSTIPATION [None]
  - DEEP VEIN THROMBOSIS [None]
  - DEHYDRATION [None]
  - FLUID INTAKE REDUCED [None]
  - HYDRONEPHROSIS [None]
  - HYPERTENSION [None]
  - MALIGNANT NEOPLASM PROGRESSION [None]
  - METASTASES TO LIVER [None]
  - POOR PERIPHERAL CIRCULATION [None]
  - RENAL FAILURE [None]
  - URINARY TRACT INFECTION [None]
